FAERS Safety Report 5342579-1 (Version None)
Quarter: 2007Q2

REPORT INFORMATION
  Report Type: 
  Country: None (occurrence: None)
  Receive Date: 20070601
  Receipt Date: 20070131
  Transmission Date: 20071010
  Serious: No
  Sender: FDA-Public Use
  Company Number: A0635993A

PATIENT
  Age: 4 Month
  Sex: Male

DRUGS (2)
  1. AUGMENTIN ES-600 [Suspect]
     Indication: EAR INFECTION
     Dosage: 1.25TSP SINGLE DOSE
     Route: 048
     Dates: start: 20070108
  2. NO CONCURRENT MEDICATION [Concomitant]

REACTIONS (4)
  - DIARRHOEA [None]
  - DRUG PRESCRIBING ERROR [None]
  - OVERDOSE [None]
  - VOMITING [None]
